FAERS Safety Report 24963981 (Version 2)
Quarter: 2025Q1

REPORT INFORMATION
  Report Type: Spontaneous
  Country: IT (occurrence: IT)
  Receive Date: 20250213
  Receipt Date: 20250304
  Transmission Date: 20250408
  Serious: Yes (Other)
  Sender: NOVARTIS
  Company Number: IT-002147023-NVSC2025IT022961

PATIENT
  Age: 44 Year
  Sex: Female

DRUGS (1)
  1. GILENYA [Suspect]
     Active Substance: FINGOLIMOD HYDROCHLORIDE
     Indication: Multiple sclerosis relapse
     Route: 065
     Dates: start: 20190513, end: 20241118

REACTIONS (1)
  - Cutaneous leishmaniasis [Not Recovered/Not Resolved]

NARRATIVE: CASE EVENT DATE: 20240601
